FAERS Safety Report 16020051 (Version 1)
Quarter: 2019Q1

REPORT INFORMATION
  Report Type: Report from Study
  Country: NL (occurrence: NL)
  Receive Date: 20190228
  Receipt Date: 20190228
  Transmission Date: 20190418
  Serious: Yes (Other)
  Sender: FDA-Public Use
  Company Number: PHHY2019NL044077

PATIENT
  Age: 82 Year
  Sex: Male

DRUGS (1)
  1. SANDOSTATIN LAR DEPOT [Suspect]
     Active Substance: OCTREOTIDE ACETATE
     Indication: HODGKIN^S DISEASE
     Dosage: 30 MG/2 ML, QMO (ONCE IN 4 WEEKS)
     Route: 030

REACTIONS (2)
  - Product use in unapproved indication [Unknown]
  - Pulmonary oedema [Recovered/Resolved]

NARRATIVE: CASE EVENT DATE: 20190220
